FAERS Safety Report 7908986-5 (Version None)
Quarter: 2011Q4

REPORT INFORMATION
  Report Type: 
  Country: None (occurrence: None)
  Receive Date: 20111111
  Receipt Date: 20111107
  Transmission Date: 20120403
  Serious: Yes (Hospitalization, Other)
  Sender: FDA-Public Use
  Company Number: PHFR2010IE04461

PATIENT
  Sex: Male

DRUGS (6)
  1. DIAZEPAM [Concomitant]
  2. AGOMELATINE [Concomitant]
  3. VALPROATE SODIUM [Concomitant]
  4. CLOZARIL [Suspect]
     Indication: SCHIZOPHRENIA
     Dosage: 25MG MORNING, 100MG NIGHT
     Route: 048
     Dates: start: 20100916, end: 20101013
  5. CLOZARIL [Suspect]
     Route: 048
     Dates: start: 20101021
  6. LITHIUM [Concomitant]

REACTIONS (7)
  - BLOOD PRESSURE INCREASED [None]
  - INFECTION [None]
  - HEART RATE INCREASED [None]
  - PUPILLARY REFLEX IMPAIRED [None]
  - HEADACHE [None]
  - EOSINOPHIL COUNT INCREASED [None]
  - EYE DISORDER [None]
